FAERS Safety Report 9247923 (Version 1)
Quarter: 2013Q1

REPORT INFORMATION
  Report Type: Spontaneous
  Country: US (occurrence: None)
  Receive Date: 20121130
  Receipt Date: 20121130
  Transmission Date: 20140127
  Serious: Yes (Hospitalization)
  Sender: FDA-Public Use
  Company Number: 341267

PATIENT
  Age: 51 Year
  Sex: Male

DRUGS (2)
  1. NOVOLOG [Suspect]
     Dosage: -PUMP
     Route: 058
     Dates: start: 201101
  2. NOVOLOG [Suspect]
     Indication: DIABETES MELLITUS
     Dosage: -PUMP
     Route: 058
     Dates: start: 201101

REACTIONS (1)
  - Blood glucose increased [None]
